FAERS Safety Report 9652923 (Version 1)
Quarter: 2013Q4

REPORT INFORMATION
  Report Type: Spontaneous
  Country: IT (occurrence: IT)
  Receive Date: 20131029
  Receipt Date: 20131029
  Transmission Date: 20140711
  Serious: Yes (Other)
  Sender: FDA-Public Use
  Company Number: IT-TEVA-438952ISR

PATIENT
  Age: 73 Year
  Sex: 0

DRUGS (8)
  1. CARBOPLATINO TEVA [Suspect]
     Indication: LUNG NEOPLASM MALIGNANT
     Dosage: 124.6 MG CYCLICAL
     Route: 042
     Dates: start: 20130606, end: 20130717
  2. GEMSOL [Concomitant]
     Dosage: 676 MILLIGRAM DAILY;
     Route: 042
  3. CLEXANE 4000IU [Concomitant]
     Route: 058
  4. MEDROL 16 MG [Concomitant]
     Route: 048
  5. CITALOPRAM 20 MG [Concomitant]
  6. BINOCRIT [Concomitant]
  7. TARGIN 5MG/2.5MG [Concomitant]
  8. KCL RETARD [Concomitant]

REACTIONS (1)
  - Hypertransaminasaemia [Recovered/Resolved]
